FAERS Safety Report 25386818 (Version 3)
Quarter: 2025Q4

REPORT INFORMATION
  Report Type: Report from Study
  Country: EU (occurrence: EU)
  Receive Date: 20250602
  Receipt Date: 20251003
  Transmission Date: 20260118
  Serious: No
  Sender: ABBVIE
  Company Number: EU-ABBVIE-6301797

PATIENT
  Age: 71 Year
  Sex: Male
  Weight: 77.6 kg

DRUGS (23)
  1. FOSCARBIDOPA\FOSLEVODOPA [Suspect]
     Active Substance: FOSCARBIDOPA\FOSLEVODOPA
     Indication: Parkinson^s disease
     Dosage: LOADING DOSE DRUG: 0.6 ML, CONTINUOUS RATE PUMP SETTING BASE?0.62 ML/H,CONTINUOUS RATE PUMP SETTI...
     Route: 058
     Dates: start: 20250307, end: 20250308
  2. FOSCARBIDOPA\FOSLEVODOPA [Suspect]
     Active Substance: FOSCARBIDOPA\FOSLEVODOPA
     Dosage: LOADING DOSE DRUG: 0.6 ML, CONTINUOUS RATE PUMP SETTING BASE?0.64 ML/H,CONTINUOUS RATE PUMP SETTI...
     Route: 058
     Dates: start: 20250308, end: 20250309
  3. FOSCARBIDOPA\FOSLEVODOPA [Suspect]
     Active Substance: FOSCARBIDOPA\FOSLEVODOPA
     Dosage: LOADING DOSE DRUG: 0.6 ML, CONTINUOUS RATE PUMP SETTING BASE?0.66 ML/H,CONTINUOUS RATE PUMP SETTI...
     Route: 058
     Dates: start: 20250309, end: 20250310
  4. FOSCARBIDOPA\FOSLEVODOPA [Suspect]
     Active Substance: FOSCARBIDOPA\FOSLEVODOPA
     Dosage: LOADING DOSE DRUG: 0.6 ML, CONTINUOUS RATE PUMP SETTING BASE?0.68 ML/H,CONTINUOUS RATE PUMP SETTI...
     Route: 058
     Dates: start: 20250310, end: 20250320
  5. FOSCARBIDOPA\FOSLEVODOPA [Suspect]
     Active Substance: FOSCARBIDOPA\FOSLEVODOPA
     Dosage: LOADING DOSE DRUG: 0.6 ML, CONTINUOUS RATE PUMP SETTING BASE?0.70 ML/H,CONTINUOUS RATE PUMP SETTI...
     Route: 058
     Dates: start: 20250320, end: 20250721
  6. FOSCARBIDOPA\FOSLEVODOPA [Suspect]
     Active Substance: FOSCARBIDOPA\FOSLEVODOPA
     Dosage: LOADING DOSE DRUG: 0.6 ML, CONTINUOUS RATE PUMP SETTING BASE?0.73 ML/H,CONTINUOUS RATE PUMP SETTI...
     Route: 058
     Dates: start: 20250721
  7. Astonin [Concomitant]
     Indication: Orthostatic hypotension
     Route: 048
     Dates: start: 20250304
  8. MIDODRINE HYDROCHLORIDE [Concomitant]
     Active Substance: MIDODRINE HYDROCHLORIDE
     Indication: Orthostatic hypotension
     Route: 048
     Dates: start: 2020
  9. ATORVASTATIN [Concomitant]
     Active Substance: ATORVASTATIN
     Indication: Hypercholesterolaemia
     Dosage: 80 MG
     Route: 048
     Dates: start: 2004
  10. EZETIMIBE [Concomitant]
     Active Substance: EZETIMIBE
     Indication: Hypercholesterolaemia
     Route: 048
     Dates: start: 2023
  11. PANTOPRAZOLE SODIUM [Concomitant]
     Active Substance: PANTOPRAZOLE SODIUM
     Indication: Gastrointestinal disorder prophylaxis
     Dosage: FORM STRENGTH : 20 MG
     Route: 048
     Dates: start: 2015
  12. TAMSULOSIN [Concomitant]
     Active Substance: TAMSULOSIN
     Indication: Prostate cancer
     Dosage: 0.4MG RETARD
     Route: 048
     Dates: start: 20250304
  13. DULOXETINE [Concomitant]
     Active Substance: DULOXETINE
     Indication: Depression
     Route: 048
     Dates: start: 20250305
  14. TADALAFIL [Concomitant]
     Active Substance: TADALAFIL
     Indication: Erectile dysfunction
     Route: 048
     Dates: start: 20250312
  15. CANDESARTAN [Concomitant]
     Active Substance: CANDESARTAN
     Indication: Hypertension
     Route: 048
     Dates: start: 20250319
  16. CANDESARTAN [Concomitant]
     Active Substance: CANDESARTAN
     Indication: Hypertension
     Route: 048
     Dates: start: 20250314, end: 20250318
  17. ROTIGOTINE [Concomitant]
     Active Substance: ROTIGOTINE
     Indication: Parkinson^s disease
     Route: 062
     Dates: start: 2019
  18. OPICAPONE [Concomitant]
     Active Substance: OPICAPONE
     Indication: Parkinson^s disease
     Route: 048
     Dates: start: 20250308
  19. ROTIGOTINE [Concomitant]
     Active Substance: ROTIGOTINE
     Indication: Product used for unknown indication
     Route: 062
     Dates: start: 20250310
  20. SAFINAMIDE [Concomitant]
     Active Substance: SAFINAMIDE
     Indication: Parkinson^s disease
     Route: 048
     Dates: start: 20250315
  21. PRAMIPEXOLE [Concomitant]
     Active Substance: PRAMIPEXOLE
     Indication: Product used for unknown indication
     Route: 048
     Dates: start: 20250318
  22. PRAMIPEXOLE [Concomitant]
     Active Substance: PRAMIPEXOLE
     Indication: Product used for unknown indication
     Route: 048
     Dates: start: 20250318
  23. KYNMOBI [Concomitant]
     Active Substance: APOMORPHINE HYDROCHLORIDE
     Indication: Parkinson^s disease
     Route: 060
     Dates: start: 20250518, end: 20250519

REACTIONS (1)
  - Akinesia [Unknown]

NARRATIVE: CASE EVENT DATE: 20250522
